FAERS Safety Report 10480508 (Version 1)
Quarter: 2014Q3

REPORT INFORMATION
  Report Type: Spontaneous
  Country: US (occurrence: None)
  Receive Date: 20140926
  Receipt Date: 20140926
  Transmission Date: 20150326
  Serious: No
  Sender: FDA-Public Use
  Company Number: None

PATIENT
  Age: 37 Year
  Sex: Female
  Weight: 59.88 kg

DRUGS (1)
  1. DULERA [Suspect]
     Active Substance: FORMOTEROL FUMARATE DIHYDRATE\MOMETASONE FUROATE
     Indication: ASTHMA
     Dosage: 2 PUFFS 1 TIME A DAY?ONCE DAILY?INHALATION
     Route: 055
     Dates: start: 20140609, end: 20140820

REACTIONS (2)
  - Menstrual disorder [None]
  - Polymenorrhoea [None]

NARRATIVE: CASE EVENT DATE: 20140923
